FAERS Safety Report 15164293 (Version 1)
Quarter: 2018Q3

REPORT INFORMATION
  Report Type: Spontaneous
  Country: US (occurrence: US)
  Receive Date: 20180719
  Receipt Date: 20180719
  Transmission Date: 20181010
  Serious: No
  Sender: FDA-Public Use
  Company Number: US-PFIZER INC-2018289070

PATIENT
  Sex: Female

DRUGS (1)
  1. ADVIL [Suspect]
     Active Substance: IBUPROFEN
     Dosage: 800 MG, 1X/DAY (MORNING)
     Dates: start: 20180717

REACTIONS (3)
  - Intentional product use issue [Unknown]
  - Pruritus generalised [Unknown]
  - Swelling [Unknown]
